FAERS Safety Report 9551599 (Version 1)
Quarter: 2013Q2

REPORT INFORMATION
  Report Type: Spontaneous
  Country: US (occurrence: None)
  Receive Date: 20130627
  Receipt Date: 20130627
  Transmission Date: 20140414
  Serious: Yes (Other)
  Sender: FDA-Public Use
  Company Number: 1000044018

PATIENT
  Age: 67 Year
  Sex: Female

DRUGS (1)
  1. LINZESS [Suspect]
     Indication: CONSTIPATION
     Dosage: (290 MCG, 1 IN 1 D)
     Route: 048
     Dates: start: 201303, end: 20130325

REACTIONS (2)
  - Diarrhoea [None]
  - Gastrooesophageal reflux disease [None]
